FAERS Safety Report 11756635 (Version 2)
Quarter: 2015Q4

REPORT INFORMATION
  Report Type: Report from Study
  Country: AR (occurrence: AR)
  Receive Date: 20151120
  Receipt Date: 20151217
  Transmission Date: 20160304
  Serious: Yes (Other)
  Sender: FDA-Public Use
  Company Number: PHHY2015AR151241

PATIENT
  Sex: Female

DRUGS (1)
  1. GILENYA [Suspect]
     Active Substance: FINGOLIMOD HYDROCHLORIDE
     Indication: MULTIPLE SCLEROSIS
     Dosage: UNK
     Route: 065
     Dates: start: 20140922

REACTIONS (7)
  - Visual impairment [Unknown]
  - Brain neoplasm [Recovered/Resolved]
  - Abasia [Recovered/Resolved]
  - Radiculopathy [Unknown]
  - Discomfort [Unknown]
  - Nervousness [Unknown]
  - Hypoaesthesia [Unknown]
